FAERS Safety Report 16821181 (Version 1)
Quarter: 2019Q4

REPORT INFORMATION
  Report Type: Spontaneous
  Country: US (occurrence: US)
  Receive Date: 20190917
  Receipt Date: 20190917
  Transmission Date: 20200122
  Serious: Yes (Other)
  Sender: FDA-Public Use
  Company Number: None

PATIENT
  Age: 33 Year
  Sex: Male

DRUGS (4)
  1. BUPRENORPHINE NALOXONE 8-2MG TABLETS [Concomitant]
     Active Substance: BUPRENORPHINE HYDROCHLORIDE\NALOXONE HYDROCHLORIDE
     Dates: start: 20190917, end: 20190917
  2. BUPRENORPHINE/NALAXONE TABLETS [Suspect]
     Active Substance: BUPRENORPHINE HYDROCHLORIDE\NALOXONE HYDROCHLORIDE
     Indication: DRUG DEPENDENCE
     Route: 048
     Dates: start: 20190530, end: 20190917
  3. BUPRENORPHINE NALOXONE 8-2MG TABLETS [Concomitant]
     Active Substance: BUPRENORPHINE HYDROCHLORIDE\NALOXONE HYDROCHLORIDE
     Dates: start: 20190212, end: 20190319
  4. ZUBSOLV 5.7 - 1.4MG [Concomitant]
     Dates: start: 20190911, end: 20190916

REACTIONS (1)
  - Headache [None]

NARRATIVE: CASE EVENT DATE: 20190911
